FAERS Safety Report 10203563 (Version 1)
Quarter: 2014Q2

REPORT INFORMATION
  Report Type: Spontaneous
  Country: GB (occurrence: None)
  Receive Date: 20140523
  Receipt Date: 20140523
  Transmission Date: 20141212
  Serious: Yes (Other)
  Sender: FDA-Public Use
  Company Number: 2350808

PATIENT
  Age: 73 Year
  Sex: Male

DRUGS (21)
  1. DEXMEDETOMIDINE HYDROCHLORIDE [Suspect]
     Indication: SEDATION
     Route: 042
     Dates: start: 20140424, end: 20140428
  2. AMIODARONE [Concomitant]
  3. AMLODIPINE [Concomitant]
  4. AMOXICILLIN [Concomitant]
  5. ASPIRIN [Concomitant]
  6. CHLORPHENAMINE [Concomitant]
  7. CLONIDINE [Concomitant]
  8. CO-AMOXICLAV [Concomitant]
  9. DOXYCYCLINE [Concomitant]
  10. ENOXAPARIN [Concomitant]
  11. FOLIC ACID [Concomitant]
  12. FUROSEMIDE [Concomitant]
  13. LANSOPRAZOLE [Concomitant]
  14. MORPHINE [Concomitant]
  15. NORADRENALINE [Concomitant]
  16. OMEPRAZOLE [Concomitant]
  17. PABRINEX [Concomitant]
  18. PARACETAMOL [Concomitant]
  19. PROPOFOL [Concomitant]
  20. REMIFENTANIL [Concomitant]
  21. CHLORHEXIDINE [Concomitant]

REACTIONS (2)
  - Supraventricular tachycardia [None]
  - Ileus [None]
